FAERS Safety Report 4435341-5 (Version None)
Quarter: 2004Q3

REPORT INFORMATION
  Report Type: 
  Country: None (occurrence: None)
  Receive Date: 20040827
  Receipt Date: 20040824
  Transmission Date: 20050211
  Serious: Yes (Other)
  Sender: FDA-Public Use
  Company Number: US-JNJFOC-20031006471

PATIENT
  Sex: Male
  Weight: 113.4 kg

DRUGS (4)
  1. DURAGESIC [Suspect]
     Route: 062
     Dates: start: 20000101, end: 20031027
  2. DURAGESIC [Suspect]
     Route: 062
     Dates: start: 20000101, end: 20031027
  3. METHADONE HCL [Concomitant]
     Route: 049
  4. XANAX [Concomitant]
     Indication: ANXIETY
     Route: 049

REACTIONS (5)
  - ANXIETY [None]
  - CEREBROVASCULAR ACCIDENT [None]
  - FALL [None]
  - NERVOUSNESS [None]
  - TREMOR [None]
